FAERS Safety Report 7462787-3 (Version None)
Quarter: 2011Q2

REPORT INFORMATION
  Report Type: 
  Country: None (occurrence: None)
  Receive Date: 20110506
  Receipt Date: 20110421
  Transmission Date: 20111010
  Serious: Yes (Hospitalization, Other)
  Sender: FDA-Public Use
  Company Number: FR-PFIZER INC-2011092262

PATIENT
  Age: 58 Year
  Sex: Female

DRUGS (14)
  1. NORSET [Concomitant]
  2. DOXORUBICIN HCL [Suspect]
     Indication: ENDOMETRIAL SARCOMA
     Dosage: 115 MG, UNK
     Route: 042
     Dates: start: 20101227
  3. DOXORUBICIN HCL [Suspect]
     Dosage: UNK
     Dates: start: 20110117
  4. RELISTOR [Suspect]
     Indication: VASCULAR OCCLUSION
     Dosage: 12 MG, UNK
     Route: 058
     Dates: start: 20101231, end: 20110222
  5. DOXORUBICIN HCL [Suspect]
     Dosage: UNK
     Dates: start: 20110207
  6. SOLUPRED [Concomitant]
  7. ATARAX [Suspect]
     Indication: PREMEDICATION
     Dosage: UNK
     Dates: start: 20101227
  8. IFOSFAMIDE [Suspect]
     Indication: ENDOMETRIAL SARCOMA
     Dosage: UNK
     Route: 042
     Dates: start: 20101227
  9. MESNA [Suspect]
     Dosage: UNK
     Route: 042
     Dates: start: 20101227
  10. FENTANYL [Concomitant]
  11. PRIMPERAN TAB [Concomitant]
  12. DOXORUBICIN HCL [Suspect]
     Dosage: 80 MG, UNK
     Dates: start: 20110308
  13. FORLAX [Concomitant]
  14. LOVENOX [Concomitant]

REACTIONS (4)
  - HEADACHE [None]
  - PANCYTOPENIA [None]
  - ANGLE CLOSURE GLAUCOMA [None]
  - RHINALGIA [None]
